FAERS Safety Report 7158103-7 (Version None)
Quarter: 2010Q4

REPORT INFORMATION
  Report Type: 
  Country: None (occurrence: None)
  Receive Date: 20101214
  Receipt Date: 20100426
  Transmission Date: 20110411
  Serious: No
  Sender: FDA-Public Use
  Company Number: US-ASTRAZENECA-2010SE18638

PATIENT
  Sex: Male

DRUGS (1)
  1. CRESTOR [Suspect]
     Indication: BLOOD CHOLESTEROL INCREASED
     Dosage: 10MG EVERY OTHER NIGHT
     Route: 048
     Dates: start: 20100201

REACTIONS (1)
  - INSOMNIA [None]
